FAERS Safety Report 7629568-9 (Version None)
Quarter: 2011Q3

REPORT INFORMATION
  Report Type: 
  Country: None (occurrence: None)
  Receive Date: 20110715
  Receipt Date: 20110706
  Transmission Date: 20111222
  Serious: Yes (Other)
  Sender: FDA-Public Use
  Company Number: AVE_02122_2011

PATIENT
  Sex: Male

DRUGS (7)
  1. CLONIDINE [Suspect]
     Indication: HYPERTENSION
     Dosage: (0.2 MG QD, VIA 1 WEEKLY/PATCH TRANSDERMAL)
     Route: 062
     Dates: start: 20100901
  2. ADALAT [Concomitant]
  3. CATAPRES [Concomitant]
  4. COZAAR [Concomitant]
  5. ALDACTONE [Concomitant]
  6. MAVIK [Concomitant]
  7. AMITIZA [Concomitant]

REACTIONS (7)
  - APPLICATION SITE PRURITUS [None]
  - PRURITUS GENERALISED [None]
  - VOMITING [None]
  - BLOOD PRESSURE DECREASED [None]
  - PRODUCT SUBSTITUTION ISSUE [None]
  - NAUSEA [None]
  - ABDOMINAL PAIN [None]
